FAERS Safety Report 24073953 (Version 2)
Quarter: 2024Q3

REPORT INFORMATION
  Report Type: Spontaneous
  Country: US (occurrence: US)
  Receive Date: 20240710
  Receipt Date: 20240827
  Transmission Date: 20241016
  Serious: No
  Sender: SANOFI AVENTIS
  Company Number: US-SA-SAC20240704000079

PATIENT
  Age: 3 Year
  Sex: Male

DRUGS (4)
  1. ELOCTATE [Suspect]
     Active Substance: EFMOROCTOCOG ALFA
     Indication: Factor VIII deficiency
     Dosage: TARGET DOSE OF 500 UNITS (+/-10%), PRN (484 UNITS/VIAL, 2 VIALS. INFUSE ONE 484 UNIT VIAL INTRAVENOU
     Route: 042
     Dates: start: 20220128
  2. ELOCTATE [Suspect]
     Active Substance: EFMOROCTOCOG ALFA
     Indication: Factor VIII deficiency
     Dosage: TARGET DOSE OF 500 UNITS (+/-10%), PRN (484 UNITS/VIAL, 2 VIALS. INFUSE ONE 484 UNIT VIAL INTRAVENOU
     Route: 042
     Dates: start: 20220128
  3. ELOCTATE [Suspect]
     Active Substance: EFMOROCTOCOG ALFA
     Dosage: TARGET DOSE OF 750 UNITS (+/-10%), PRN (750 UNIT: ELOCTATE 746 UNITS/VIAL, 1 VIAL. INFUSE ONE 746 UN
     Route: 042
     Dates: start: 20220128
  4. ELOCTATE [Suspect]
     Active Substance: EFMOROCTOCOG ALFA
     Dosage: TARGET DOSE OF 750 UNITS (+/-10%), PRN (750 UNIT: ELOCTATE 746 UNITS/VIAL, 1 VIAL. INFUSE ONE 746 UN
     Route: 042
     Dates: start: 20220128

REACTIONS (2)
  - Traumatic haemorrhage [Unknown]
  - Head injury [Recovered/Resolved]
